FAERS Safety Report 4317012-9 (Version None)
Quarter: 2004Q1

REPORT INFORMATION
  Report Type: 
  Country: None (occurrence: None)
  Receive Date: 20040312
  Receipt Date: 20040225
  Transmission Date: 20041129
  Serious: Yes (Hospitalization)
  Sender: FDA-Public Use
  Company Number: 2004IM00376

PATIENT
  Age: 34 Year
  Sex: Female

DRUGS (1)
  1. ACTIMMUNE [Suspect]
     Indication: ASTHMA
     Dosage: 100 UG; SUBCUTANEOUS
     Route: 058
     Dates: start: 20040101, end: 20040219

REACTIONS (8)
  - ASTHMA [None]
  - CHILLS [None]
  - CONDITION AGGRAVATED [None]
  - DEHYDRATION [None]
  - MALAISE [None]
  - NAUSEA [None]
  - PYREXIA [None]
  - VOMITING [None]
